FAERS Safety Report 6104148-5 (Version None)
Quarter: 2009Q1

REPORT INFORMATION
  Report Type: 
  Country: None (occurrence: None)
  Receive Date: 20090305
  Receipt Date: 20090225
  Transmission Date: 20090719
  Serious: Yes (Other)
  Sender: FDA-Public Use
  Company Number: US-ELI_LILLY_AND_COMPANY-US200902007342

PATIENT
  Sex: Male

DRUGS (2)
  1. HUMALOG [Suspect]
     Indication: TYPE 2 DIABETES MELLITUS
  2. WATER PILLS [Concomitant]

REACTIONS (14)
  - ANGER [None]
  - ARTHRITIS [None]
  - CARDIAC FAILURE CONGESTIVE [None]
  - DEPRESSION [None]
  - ECZEMA [None]
  - FATIGUE [None]
  - FLUID RETENTION [None]
  - IRRITABILITY [None]
  - PANCREATIC CARCINOMA [None]
  - PANCREATIC MASS [None]
  - POLLAKIURIA [None]
  - TREMOR [None]
  - VASCULAR GRAFT [None]
  - VISUAL ACUITY REDUCED [None]
